FAERS Safety Report 5960130-X (Version None)
Quarter: 2008Q4

REPORT INFORMATION
  Report Type: 
  Country: None (occurrence: None)
  Receive Date: 20081112
  Receipt Date: 20080711
  Transmission Date: 20090506
  Serious: Yes (Other)
  Sender: FDA-Public Use
  Company Number: US-JNJFOC-20080701913

PATIENT
  Age: 72 Year
  Sex: Female
  Weight: 72.5755 kg

DRUGS (5)
  1. IBUPROFEN TABLETS [Suspect]
     Indication: FIBROMYALGIA
     Dates: start: 19900101, end: 20080101
  2. CELEBREX [Suspect]
     Indication: FIBROMYALGIA
  3. PAXIL [Concomitant]
  4. ZOLOFT [Concomitant]
  5. TRAZODONE HCL [Concomitant]

REACTIONS (6)
  - HAEMATEMESIS [None]
  - HYPERTENSION [None]
  - INSOMNIA [None]
  - MUSCLE SPASMS [None]
  - NAUSEA [None]
  - SWELLING [None]
